FAERS Safety Report 25178722 (Version 1)
Quarter: 2025Q2

REPORT INFORMATION
  Report Type: Report from Study
  Country: DE (occurrence: DE)
  Receive Date: 20250409
  Receipt Date: 20250409
  Transmission Date: 20250716
  Serious: Yes (Other)
  Sender: ALIMERA
  Company Number: DE-ALIMERA SCIENCES LIMITED-DE-IL-2017-003205

PATIENT
  Sex: Female

DRUGS (6)
  1. ILUVIEN [Suspect]
     Active Substance: FLUOCINOLONE ACETONIDE
     Indication: Diabetic retinal oedema
     Dosage: 0.25 MICROGRAM, QD-LEFT EYE
     Route: 031
     Dates: start: 20160525
  2. VALSARTAN [Concomitant]
     Active Substance: VALSARTAN
     Indication: Hypertension
  3. ESTRADIOL [Concomitant]
     Active Substance: ESTRADIOL
     Indication: Menopause
  4. PROGESTERONE [Concomitant]
     Active Substance: PROGESTERONE
     Indication: Menopause
  5. ASPIRIN [Concomitant]
     Active Substance: ASPIRIN
     Indication: Cardiovascular event prophylaxis
  6. Epastel (Pro Renata) [Concomitant]
     Indication: Seasonal allergy

REACTIONS (2)
  - Intraocular lens implant [Recovered/Resolved]
  - Cataract operation [Recovered/Resolved]

NARRATIVE: CASE EVENT DATE: 20170127
